FAERS Safety Report 8283391-3 (Version None)
Quarter: 2012Q2

REPORT INFORMATION
  Report Type: 
  Country: None (occurrence: None)
  Receive Date: 20120413
  Receipt Date: 20120403
  Transmission Date: 20120825
  Serious: Yes (Other)
  Sender: FDA-Public Use
  Company Number: US-MPIJNJ-2012-02346

PATIENT
  Age: 64 Year
  Sex: Female
  Weight: 61.1 kg

DRUGS (2)
  1. VELCADE [Suspect]
     Indication: MULTIPLE MYELOMA
     Dosage: 1.3 MG/M2, CYCLIC
     Route: 042
     Dates: start: 20111028
  2. DECADRON [Suspect]
     Indication: MULTIPLE MYELOMA
     Dosage: 10 MG, CYCLIC
     Route: 042
     Dates: start: 20111028

REACTIONS (1)
  - LUNG SQUAMOUS CELL CARCINOMA STAGE UNSPECIFIED [None]
